FAERS Safety Report 6551456-X (Version None)
Quarter: 2010Q1

REPORT INFORMATION
  Report Type: 
  Country: None (occurrence: None)
  Receive Date: 20100122
  Receipt Date: 20090729
  Transmission Date: 20100710
  Serious: No
  Sender: FDA-Public Use
  Company Number: 2009-00679

PATIENT
  Age: 48 Year
  Sex: Female
  Weight: 66.6788 kg

DRUGS (2)
  1. COLD REMEDY NASAL GEL [Suspect]
  2. PROTONIX [Concomitant]

REACTIONS (1)
  - ANOSMIA [None]
